FAERS Safety Report 7977351-7 (Version None)
Quarter: 2011Q4

REPORT INFORMATION
  Report Type: 
  Country: None (occurrence: None)
  Receive Date: 20111213
  Receipt Date: 20111026
  Transmission Date: 20120403
  Serious: Yes (Other)
  Sender: FDA-Public Use
  Company Number: PHHY2011NL73725

PATIENT
  Sex: Female

DRUGS (3)
  1. SANDOSTATIN LAR [Suspect]
     Dosage: 10 MG, UNK
  2. SANDOSTATIN LAR [Suspect]
     Dosage: 10 MG, UNK
  3. SANDOSTATIN LAR [Suspect]
     Dosage: 30 MG, UNK

REACTIONS (2)
  - METASTASES TO LYMPH NODES [None]
  - GASTROINTESTINAL PAIN [None]
